FAERS Safety Report 7636904-6 (Version None)
Quarter: 2011Q3

REPORT INFORMATION
  Report Type: 
  Country: None (occurrence: None)
  Receive Date: 20110726
  Receipt Date: 20110615
  Transmission Date: 20111222
  Serious: Yes (Death, Hospitalization, Other)
  Sender: FDA-Public Use
  Company Number: US-BAXTER-2010BH026551

PATIENT
  Age: 85 Year
  Sex: Female

DRUGS (134)
  1. HEPARIN SODIUM INJECTION [Suspect]
     Route: 040
     Dates: start: 20080112, end: 20080112
  2. HEPARIN SODIUM INJECTION [Suspect]
     Route: 040
     Dates: start: 20071203, end: 20081020
  3. HEPARIN SODIUM INJECTION [Suspect]
     Route: 042
     Dates: start: 20071203, end: 20081020
  4. HEPARIN SODIUM INJECTION [Suspect]
     Route: 041
     Dates: start: 20080112, end: 20080113
  5. HEPARIN SODIUM INJECTION [Suspect]
     Route: 041
     Dates: start: 20080112, end: 20080113
  6. HEPARIN SODIUM INJECTION [Suspect]
     Route: 058
     Dates: start: 20080116, end: 20080118
  7. HEPARIN SODIUM INJECTION [Suspect]
     Route: 040
     Dates: start: 20080116, end: 20080118
  8. HEPARIN SODIUM INJECTION [Suspect]
     Route: 042
     Dates: start: 20080116, end: 20080118
  9. HEPARIN SODIUM INJECTION [Suspect]
     Route: 040
     Dates: start: 20080222, end: 20080225
  10. HEPARIN SODIUM INJECTION [Suspect]
     Route: 040
     Dates: start: 20080222, end: 20080225
  11. HEPARIN SODIUM INJECTION [Suspect]
     Route: 042
     Dates: start: 20080222, end: 20080225
  12. HEPARIN SODIUM INJECTION [Suspect]
     Route: 042
     Dates: start: 20080225
  13. HEPARIN SODIUM INJECTION [Suspect]
     Route: 058
     Dates: start: 20080523, end: 20080529
  14. HEPARIN SODIUM INJECTION [Suspect]
     Route: 058
     Dates: start: 20080523, end: 20080529
  15. HEPARIN SODIUM INJECTION [Suspect]
     Route: 058
     Dates: start: 20080523, end: 20080529
  16. HEPARIN SODIUM INJECTION [Suspect]
     Route: 058
     Dates: start: 20081009, end: 20081014
  17. HEPARIN SODIUM INJECTION [Suspect]
     Route: 040
     Dates: start: 20081020, end: 20081024
  18. HEPARIN SODIUM INJECTION [Suspect]
     Route: 058
     Dates: start: 20081020, end: 20081027
  19. HEPARIN SODIUM 5,000 UNITS IN DEXTROSE 5% [Suspect]
     Indication: ATRIAL FIBRILLATION
     Route: 065
     Dates: start: 20080112, end: 20080112
  20. HEPARIN SODIUM 5,000 UNITS IN DEXTROSE 5% [Suspect]
     Route: 065
     Dates: start: 20080113, end: 20080117
  21. HEPARIN SODIUM 5,000 UNITS IN DEXTROSE 5% [Suspect]
     Route: 065
     Dates: start: 20080113, end: 20080117
  22. HEPARIN SODIUM 5,000 UNITS IN DEXTROSE 5% [Suspect]
     Route: 065
     Dates: start: 20081003, end: 20081014
  23. HYDROCODONE BITARTRATE [Concomitant]
     Indication: PRODUCT USED FOR UNKNOWN INDICATION
     Route: 065
  24. HEPARIN SODIUM INJECTION [Suspect]
     Indication: ARTERIOVENOUS SHUNT OPERATION
     Route: 040
     Dates: start: 20071201, end: 20081029
  25. HEPARIN SODIUM INJECTION [Suspect]
     Route: 040
     Dates: start: 20071203, end: 20081020
  26. HEPARIN SODIUM INJECTION [Suspect]
     Route: 040
     Dates: start: 20071203, end: 20081020
  27. HEPARIN SODIUM INJECTION [Suspect]
     Route: 040
     Dates: start: 20071203, end: 20081020
  28. HEPARIN SODIUM INJECTION [Suspect]
     Route: 042
     Dates: start: 20071203, end: 20081020
  29. HEPARIN SODIUM INJECTION [Suspect]
     Route: 042
     Dates: start: 20071203, end: 20081020
  30. HEPARIN SODIUM INJECTION [Suspect]
     Route: 058
     Dates: start: 20080113
  31. HEPARIN SODIUM INJECTION [Suspect]
     Route: 040
     Dates: start: 20080222, end: 20080225
  32. HEPARIN SODIUM INJECTION [Suspect]
     Route: 040
     Dates: start: 20080530
  33. HEPARIN SODIUM INJECTION [Suspect]
     Route: 042
     Dates: start: 20080530
  34. HEPARIN SODIUM INJECTION [Suspect]
     Route: 040
     Dates: start: 20081001, end: 20081010
  35. HEPARIN SODIUM 5,000 UNITS IN DEXTROSE 5% [Suspect]
     Route: 065
     Dates: start: 20081003, end: 20081014
  36. HEPARIN SODIUM 5,000 UNITS IN DEXTROSE 5% [Suspect]
     Route: 042
     Dates: start: 20080930, end: 20081003
  37. ASPIRIN [Concomitant]
     Indication: PRODUCT USED FOR UNKNOWN INDICATION
     Route: 065
  38. EPOGEN [Concomitant]
     Indication: PRODUCT USED FOR UNKNOWN INDICATION
     Route: 065
  39. HEPARIN SODIUM INJECTION [Suspect]
     Route: 065
     Dates: start: 20080113, end: 20080117
  40. HEPARIN SODIUM INJECTION [Suspect]
     Route: 065
     Dates: start: 20080524, end: 20080529
  41. HEPARIN SODIUM INJECTION [Suspect]
     Route: 058
     Dates: start: 20080116, end: 20080118
  42. HEPARIN SODIUM INJECTION [Suspect]
     Route: 040
     Dates: start: 20080116, end: 20080118
  43. HEPARIN SODIUM INJECTION [Suspect]
     Route: 042
     Dates: start: 20080222, end: 20080225
  44. HEPARIN SODIUM INJECTION [Suspect]
     Route: 042
     Dates: start: 20080225
  45. HEPARIN SODIUM INJECTION [Suspect]
     Route: 040
     Dates: start: 20081001, end: 20081010
  46. HEPARIN SODIUM INJECTION [Suspect]
     Route: 042
     Dates: start: 20081001, end: 20081010
  47. HEPARIN SODIUM INJECTION [Suspect]
     Route: 042
     Dates: start: 20081001, end: 20081010
  48. HEPARIN SODIUM INJECTION [Suspect]
     Route: 040
     Dates: start: 20081020, end: 20081024
  49. HEPARIN SODIUM 5,000 UNITS IN DEXTROSE 5% [Suspect]
     Indication: ARTERIAL BYPASS OPERATION
     Route: 065
     Dates: start: 20080112, end: 20080112
  50. HEPARIN SODIUM 5,000 UNITS IN DEXTROSE 5% [Suspect]
     Route: 065
  51. HEPARIN SODIUM 5,000 UNITS IN DEXTROSE 5% [Suspect]
     Route: 042
     Dates: start: 20080930, end: 20081003
  52. HEPARIN SODIUM 5,000 UNITS IN DEXTROSE 5% [Suspect]
     Route: 042
     Dates: start: 20081006, end: 20081009
  53. HEPARIN [Suspect]
     Indication: HAEMODIALYSIS
     Route: 042
     Dates: start: 20071203
  54. LEXAPRO [Concomitant]
     Indication: PRODUCT USED FOR UNKNOWN INDICATION
     Route: 065
  55. EMLA [Concomitant]
     Indication: PRODUCT USED FOR UNKNOWN INDICATION
     Route: 061
  56. HEPARIN SODIUM INJECTION [Suspect]
     Route: 065
     Dates: start: 20080113, end: 20080117
  57. HEPARIN SODIUM INJECTION [Suspect]
     Route: 065
     Dates: start: 20080113, end: 20080117
  58. HEPARIN SODIUM INJECTION [Suspect]
     Route: 041
     Dates: start: 20080112, end: 20080113
  59. HEPARIN SODIUM INJECTION [Suspect]
     Route: 065
     Dates: start: 20080524, end: 20080529
  60. HEPARIN SODIUM INJECTION [Suspect]
     Route: 058
     Dates: start: 20080116, end: 20080118
  61. HEPARIN SODIUM INJECTION [Suspect]
     Route: 040
     Dates: start: 20080222, end: 20080225
  62. HEPARIN SODIUM INJECTION [Suspect]
     Route: 040
     Dates: start: 20081020, end: 20081024
  63. DIGOXIN [Concomitant]
     Indication: PRODUCT USED FOR UNKNOWN INDICATION
     Route: 065
  64. VITAMIN B-12 [Concomitant]
     Indication: PRODUCT USED FOR UNKNOWN INDICATION
     Route: 065
  65. SYNTHROID [Concomitant]
     Indication: PRODUCT USED FOR UNKNOWN INDICATION
     Route: 065
  66. MULTIVITAMIN [Concomitant]
     Indication: PRODUCT USED FOR UNKNOWN INDICATION
     Route: 048
  67. HEPARIN SODIUM INJECTION [Suspect]
     Indication: THROMBOSIS PROPHYLAXIS
     Route: 040
     Dates: start: 20071201, end: 20081029
  68. HEPARIN SODIUM INJECTION [Suspect]
     Route: 040
     Dates: start: 20080112, end: 20080112
  69. HEPARIN SODIUM INJECTION [Suspect]
     Route: 065
     Dates: start: 20081019, end: 20081027
  70. HEPARIN SODIUM INJECTION [Suspect]
     Route: 065
     Dates: start: 20080113, end: 20080117
  71. HEPARIN SODIUM INJECTION [Suspect]
     Route: 058
     Dates: start: 20080113
  72. HEPARIN SODIUM INJECTION [Suspect]
     Route: 065
     Dates: start: 20080524, end: 20080529
  73. HEPARIN SODIUM INJECTION [Suspect]
     Route: 042
     Dates: start: 20080222, end: 20080225
  74. HEPARIN SODIUM INJECTION [Suspect]
     Route: 042
     Dates: start: 20080222, end: 20080225
  75. HEPARIN SODIUM INJECTION [Suspect]
     Route: 040
     Dates: start: 20080530
  76. HEPARIN SODIUM INJECTION [Suspect]
     Route: 042
     Dates: start: 20080530
  77. HEPARIN SODIUM INJECTION [Suspect]
     Route: 042
     Dates: start: 20080530
  78. HEPARIN SODIUM INJECTION [Suspect]
     Route: 058
     Dates: start: 20081009, end: 20081014
  79. HEPARIN SODIUM INJECTION [Suspect]
     Route: 040
     Dates: start: 20081001, end: 20081010
  80. HEPARIN SODIUM INJECTION [Suspect]
     Route: 042
     Dates: start: 20081020, end: 20081024
  81. HEPARIN SODIUM INJECTION [Suspect]
     Route: 042
     Dates: start: 20081020, end: 20081024
  82. HEPARIN SODIUM INJECTION [Suspect]
     Route: 058
     Dates: start: 20081020, end: 20081027
  83. HEPARIN SODIUM 5,000 UNITS IN DEXTROSE 5% [Suspect]
     Route: 065
     Dates: start: 20081003, end: 20081014
  84. HEPARIN SODIUM 5,000 UNITS IN DEXTROSE 5% [Suspect]
     Route: 065
  85. HEPARIN SODIUM 5,000 UNITS IN DEXTROSE 5% [Suspect]
     Route: 042
     Dates: start: 20081006, end: 20081009
  86. PRILOSEC [Concomitant]
     Indication: PRODUCT USED FOR UNKNOWN INDICATION
     Route: 065
  87. COLACE [Concomitant]
     Indication: PRODUCT USED FOR UNKNOWN INDICATION
     Route: 048
  88. NEXIUM [Concomitant]
     Indication: PRODUCT USED FOR UNKNOWN INDICATION
     Route: 065
  89. HEPARIN SODIUM INJECTION [Suspect]
     Indication: VASCULAR GRAFT
     Route: 040
     Dates: start: 20071201, end: 20081029
  90. HEPARIN SODIUM INJECTION [Suspect]
     Indication: HAEMODIALYSIS
     Route: 040
     Dates: start: 20071201, end: 20081029
  91. HEPARIN SODIUM INJECTION [Suspect]
     Route: 040
     Dates: start: 20080112, end: 20080112
  92. HEPARIN SODIUM INJECTION [Suspect]
     Route: 065
     Dates: start: 20081019, end: 20081027
  93. HEPARIN SODIUM INJECTION [Suspect]
     Route: 058
     Dates: start: 20080113
  94. HEPARIN SODIUM INJECTION [Suspect]
     Route: 040
     Dates: start: 20080116, end: 20080118
  95. HEPARIN SODIUM INJECTION [Suspect]
     Route: 040
     Dates: start: 20080116, end: 20080118
  96. HEPARIN SODIUM INJECTION [Suspect]
     Route: 042
     Dates: start: 20080116, end: 20080118
  97. HEPARIN SODIUM INJECTION [Suspect]
     Route: 042
     Dates: start: 20080225
  98. HEPARIN SODIUM INJECTION [Suspect]
     Route: 058
     Dates: start: 20081009, end: 20081014
  99. HEPARIN SODIUM INJECTION [Suspect]
     Route: 042
     Dates: start: 20081001, end: 20081010
  100. HEPARIN SODIUM INJECTION [Suspect]
     Route: 042
     Dates: start: 20081001, end: 20081010
  101. HEPARIN SODIUM INJECTION [Suspect]
     Route: 042
     Dates: start: 20081020, end: 20081024
  102. HEPARIN SODIUM INJECTION [Suspect]
     Route: 042
     Dates: start: 20081020, end: 20081024
  103. HEPARIN SODIUM INJECTION [Suspect]
     Route: 058
     Dates: start: 20081020, end: 20081027
  104. HECTOROL [Concomitant]
     Indication: PRODUCT USED FOR UNKNOWN INDICATION
     Route: 065
  105. HEPARIN SODIUM INJECTION [Suspect]
     Route: 040
     Dates: start: 20080112, end: 20080112
  106. HEPARIN SODIUM INJECTION [Suspect]
     Route: 065
     Dates: start: 20081019, end: 20081027
  107. HEPARIN SODIUM INJECTION [Suspect]
     Route: 041
     Dates: start: 20080112, end: 20080113
  108. HEPARIN SODIUM INJECTION [Suspect]
     Route: 058
     Dates: start: 20080113
  109. HEPARIN SODIUM INJECTION [Suspect]
     Route: 042
     Dates: start: 20080116, end: 20080118
  110. HEPARIN SODIUM INJECTION [Suspect]
     Route: 040
     Dates: start: 20080530
  111. HEPARIN SODIUM INJECTION [Suspect]
     Route: 058
     Dates: start: 20081009, end: 20081014
  112. HEPARIN SODIUM INJECTION [Suspect]
     Route: 058
     Dates: start: 20081020, end: 20081027
  113. HEPARIN SODIUM 5,000 UNITS IN DEXTROSE 5% [Suspect]
     Indication: VASCULAR GRAFT
     Route: 065
     Dates: start: 20080112, end: 20080112
  114. HEPARIN SODIUM 5,000 UNITS IN DEXTROSE 5% [Suspect]
     Route: 065
  115. METOPROLOL TARTRATE [Concomitant]
     Indication: PRODUCT USED FOR UNKNOWN INDICATION
     Route: 065
  116. LORTAB [Concomitant]
     Indication: PRODUCT USED FOR UNKNOWN INDICATION
     Route: 065
  117. RISPERDAL [Concomitant]
     Indication: PRODUCT USED FOR UNKNOWN INDICATION
     Route: 065
  118. HEPARIN SODIUM INJECTION [Suspect]
     Route: 065
     Dates: start: 20081019, end: 20081027
  119. HEPARIN SODIUM INJECTION [Suspect]
     Route: 042
     Dates: start: 20071203, end: 20081020
  120. HEPARIN SODIUM INJECTION [Suspect]
     Route: 065
     Dates: start: 20080524, end: 20080529
  121. HEPARIN SODIUM INJECTION [Suspect]
     Route: 058
     Dates: start: 20080116, end: 20080118
  122. HEPARIN SODIUM INJECTION [Suspect]
     Route: 042
     Dates: start: 20080116, end: 20080118
  123. HEPARIN SODIUM INJECTION [Suspect]
     Route: 042
     Dates: start: 20080225
  124. HEPARIN SODIUM INJECTION [Suspect]
     Route: 058
     Dates: start: 20080523, end: 20080529
  125. HEPARIN SODIUM INJECTION [Suspect]
     Route: 040
     Dates: start: 20080530
  126. HEPARIN SODIUM INJECTION [Suspect]
     Route: 042
     Dates: start: 20080530
  127. HEPARIN SODIUM INJECTION [Suspect]
     Route: 040
     Dates: start: 20081001, end: 20081010
  128. HEPARIN SODIUM INJECTION [Suspect]
     Route: 040
     Dates: start: 20081020, end: 20081024
  129. HEPARIN SODIUM 5,000 UNITS IN DEXTROSE 5% [Suspect]
     Route: 065
     Dates: start: 20080113, end: 20080117
  130. HEPARIN SODIUM 5,000 UNITS IN DEXTROSE 5% [Suspect]
     Route: 042
     Dates: start: 20080930, end: 20081003
  131. HEPARIN SODIUM 5,000 UNITS IN DEXTROSE 5% [Suspect]
     Route: 042
     Dates: start: 20081006, end: 20081009
  132. RENA-VITE [Concomitant]
     Indication: PRODUCT USED FOR UNKNOWN INDICATION
     Route: 048
  133. PLETAL [Concomitant]
     Indication: PRODUCT USED FOR UNKNOWN INDICATION
     Route: 065
  134. RENAGEL [Concomitant]
     Indication: PRODUCT USED FOR UNKNOWN INDICATION
     Route: 065

REACTIONS (27)
  - PAIN IN EXTREMITY [None]
  - HYPOTENSION [None]
  - SEPSIS [None]
  - ARTERIOVENOUS GRAFT SITE INFECTION [None]
  - RECTAL HAEMORRHAGE [None]
  - ESCHAR [None]
  - NAUSEA [None]
  - OEDEMA [None]
  - MUSCULOSKELETAL PAIN [None]
  - BUNDLE BRANCH BLOCK LEFT [None]
  - VOMITING [None]
  - LOWER GASTROINTESTINAL HAEMORRHAGE [None]
  - PERIPHERAL COLDNESS [None]
  - ABDOMINAL DISTENSION [None]
  - CLOSTRIDIAL INFECTION [None]
  - DECUBITUS ULCER [None]
  - MUSCLE SPASMS [None]
  - MENTAL STATUS CHANGES [None]
  - CELLULITIS [None]
  - CYANOSIS [None]
  - SHUNT THROMBOSIS [None]
  - ABDOMINAL PAIN [None]
  - ARTERIOVENOUS FISTULA SITE COMPLICATION [None]
  - DIARRHOEA [None]
  - WOUND SECRETION [None]
  - ACUTE MYOCARDIAL INFARCTION [None]
  - ACETABULUM FRACTURE [None]
